FAERS Safety Report 10202168 (Version 5)
Quarter: 2014Q3

REPORT INFORMATION
  Report Type: Spontaneous
  Country: US (occurrence: US)
  Receive Date: 20140528
  Receipt Date: 20140708
  Transmission Date: 20150326
  Serious: Yes (Hospitalization, Other)
  Sender: FDA-Public Use
  Company Number: US-BAXTER-2014BAX027275

PATIENT
  Age: 62 Year
  Sex: Female

DRUGS (1)
  1. DIANEAL LOW CALCIUM PERITONEAL DIALYSIS SOLUTION WITH DEXTROSE [Suspect]
     Active Substance: CALCIUM CHLORIDE\DEXTROSE\MAGNESIUM CHLORIDE\SODIUM CHLORIDE\SODIUM LACTATE
     Indication: PERITONEAL DIALYSIS
     Route: 033

REACTIONS (11)
  - Blood glucose increased [Unknown]
  - Chest pain [Unknown]
  - Cardiac failure congestive [Unknown]
  - General physical health deterioration [Unknown]
  - Disease complication [Unknown]
  - Systemic lupus erythematosus [Unknown]
  - Peritonitis bacterial [Recovering/Resolving]
  - Peripheral vascular disorder [Unknown]
  - Pleural effusion [Unknown]
  - Pleuroperitoneal communication [Unknown]
  - Cardiac disorder [Unknown]

NARRATIVE: CASE EVENT DATE: 20140522
